FAERS Safety Report 12070852 (Version 2)
Quarter: 2016Q1

REPORT INFORMATION
  Report Type: Spontaneous
  Country: TR (occurrence: TR)
  Receive Date: 20160211
  Receipt Date: 20160301
  Transmission Date: 20160526
  Serious: Yes (Hospitalization)
  Sender: FDA-Public Use
  Company Number: ALCN2016TR001057

PATIENT
  Age: 41 Year
  Sex: Male

DRUGS (1)
  1. ALCAINE [Suspect]
     Active Substance: PROPARACAINE HYDROCHLORIDE
     Indication: EYE PAIN
     Dosage: UNK
     Route: 047

REACTIONS (7)
  - Hypopyon [Unknown]
  - Corneal oedema [Unknown]
  - Intentional product misuse [Unknown]
  - Keratopathy [Unknown]
  - Ulcerative keratitis [Unknown]
  - Persistent corneal epithelial defect [Recovering/Resolving]
  - Conjunctival hyperaemia [Unknown]
